FAERS Safety Report 17151249 (Version 1)
Quarter: 2019Q4

REPORT INFORMATION
  Report Type: Spontaneous
  Country: BR (occurrence: BR)
  Receive Date: 20191213
  Receipt Date: 20191213
  Transmission Date: 20200122
  Serious: Yes (Other)
  Sender: FDA-Public Use
  Company Number: BR-AMGEN-BRASP2016104504

PATIENT
  Age: 66 Year
  Sex: Male

DRUGS (1)
  1. ENBREL [Suspect]
     Active Substance: ETANERCEPT
     Indication: PRODUCT USED FOR UNKNOWN INDICATION
     Dosage: UNK
     Route: 065
     Dates: start: 200709, end: 201711

REACTIONS (7)
  - Pain [Unknown]
  - Psoriasis [Unknown]
  - Cardiac valve disease [Unknown]
  - Condition aggravated [Unknown]
  - Injury [Unknown]
  - Headache [Unknown]
  - Influenza [Unknown]
